FAERS Safety Report 15267059 (Version 4)
Quarter: 2018Q4

REPORT INFORMATION
  Report Type: Spontaneous
  Country: US (occurrence: US)
  Receive Date: 20180810
  Receipt Date: 20181010
  Transmission Date: 20190204
  Serious: Yes (Death, Hospitalization, Other)
  Sender: FDA-Public Use
  Company Number: US-ACTELION-A-NJ2018-177004

PATIENT
  Age: 44 Year
  Sex: Female

DRUGS (2)
  1. VELETRI [Suspect]
     Active Substance: EPOPROSTENOL
     Dosage: 20 NG/KG, PER MIN
     Route: 042
     Dates: start: 201807, end: 20181004
  2. VELETRI [Suspect]
     Active Substance: EPOPROSTENOL
     Indication: PULMONARY HYPERTENSION
     Dosage: 19 NG/KG, PER MIN
     Route: 042
     Dates: start: 20180714

REACTIONS (8)
  - Respiratory distress [Unknown]
  - Fluid overload [Not Recovered/Not Resolved]
  - Deep vein thrombosis [Unknown]
  - Chemotherapy [Not Recovered/Not Resolved]
  - Pulmonary embolism [Unknown]
  - Gastrointestinal haemorrhage [Not Recovered/Not Resolved]
  - Pneumonia [Unknown]
  - Cardiac arrest [Fatal]

NARRATIVE: CASE EVENT DATE: 20180731
